FAERS Safety Report 8257736-4 (Version None)
Quarter: 2012Q2

REPORT INFORMATION
  Report Type: 
  Country: None (occurrence: None)
  Receive Date: 20120404
  Receipt Date: 20120326
  Transmission Date: 20120825
  Serious: Yes (Death)
  Sender: FDA-Public Use
  Company Number: CA-BIOGENIDEC-2012BI006422

PATIENT
  Age: 60 Year
  Sex: Female

DRUGS (1)
  1. AVONEX [Suspect]
     Indication: RELAPSING-REMITTING MULTIPLE SCLEROSIS
     Route: 030
     Dates: start: 20090922, end: 20101001

REACTIONS (2)
  - PROGRESSIVE SUPRANUCLEAR PALSY [None]
  - SECONDARY PROGRESSIVE MULTIPLE SCLEROSIS [None]
